FAERS Safety Report 20744112 (Version 1)
Quarter: 2022Q2

REPORT INFORMATION
  Report Type: Spontaneous
  Country: US (occurrence: None)
  Receive Date: 20220424
  Receipt Date: 20220424
  Transmission Date: 20220721
  Serious: Yes (Other)
  Sender: FDA-Public Use
  Company Number: None

PATIENT
  Age: 38 Year
  Sex: Female

DRUGS (3)
  1. EVUSHELD [Suspect]
     Active Substance: CILGAVIMAB\TIXAGEVIMAB
     Indication: Immunodeficiency
     Dosage: OTHER FREQUENCY : ONCE;?
     Route: 030
     Dates: start: 20220127, end: 20220311
  2. EVUSHELD [Suspect]
     Active Substance: CILGAVIMAB\TIXAGEVIMAB
     Indication: COVID-19
  3. ESCITALOPRAM [Concomitant]
     Active Substance: ESCITALOPRAM OXALATE

REACTIONS (3)
  - Chest pain [None]
  - Chest discomfort [None]
  - Troponin increased [None]

NARRATIVE: CASE EVENT DATE: 20220211
